FAERS Safety Report 26054590 (Version 1)
Quarter: 2025Q4

REPORT INFORMATION
  Report Type: Spontaneous
  Country: US (occurrence: US)
  Receive Date: 20251117
  Receipt Date: 20251117
  Transmission Date: 20260118
  Serious: Yes (Hospitalization, Other)
  Sender: Pyros Pharmaceuticals
  Company Number: US-PYROS PHARMACEUTICALS, INC-20251101446

PATIENT

DRUGS (1)
  1. VIGAFYDE [Suspect]
     Active Substance: VIGABATRIN
     Indication: Infantile spasms
     Dosage: 900 MG, BID (9 ML)
     Route: 048
     Dates: start: 20250923

REACTIONS (1)
  - Infantile spasms [Unknown]

NARRATIVE: CASE EVENT DATE: 20250101
